FAERS Safety Report 7128493-X (Version None)
Quarter: 2010Q4

REPORT INFORMATION
  Report Type: 
  Country: None (occurrence: None)
  Receive Date: 20101130
  Receipt Date: 20101118
  Transmission Date: 20110411
  Serious: Yes (Hospitalization)
  Sender: FDA-Public Use
  Company Number: FR-NAPPMUNDI-GBR-2010-0007392

PATIENT
  Sex: Female

DRUGS (9)
  1. OXYCONTIN [Suspect]
     Indication: PRODUCT USED FOR UNKNOWN INDICATION
  2. OXYNORM [Suspect]
     Indication: PRODUCT USED FOR UNKNOWN INDICATION
  3. BENDAMUSTINE HCL [Suspect]
     Indication: MULTIPLE MYELOMA
     Dosage: 172.5 MG/M2, UNK
     Route: 042
     Dates: start: 20100701
  4. BENDAMUSTINE HCL [Suspect]
     Dosage: 215 MG/M2, UNK
     Route: 042
     Dates: start: 20100519
  5. BENDAMUSTINE HCL [Suspect]
     Dosage: 215 MG/M2, UNK
     Route: 042
     Dates: start: 20100415, end: 20101022
  6. LYRICA [Concomitant]
     Dosage: 25 MG, (2-0-2)
  7. PRIMPERAN [Concomitant]
     Dosage: UNK
  8. ISOPTIN [Concomitant]
     Dosage: 240 MG, (0.5-0-0.5)
  9. REVLIMID [Concomitant]
     Indication: OSTEOSYNTHESIS
     Dosage: UNK
     Dates: start: 20100301

REACTIONS (6)
  - ANAEMIA [None]
  - ASTHENIA [None]
  - FALL [None]
  - JOINT EFFUSION [None]
  - NEUTROPENIA [None]
  - THROMBOCYTOPENIA [None]
